FAERS Safety Report 13735389 (Version 3)
Quarter: 2017Q3

REPORT INFORMATION
  Report Type: Spontaneous
  Country: US (occurrence: US)
  Receive Date: 20170710
  Receipt Date: 20170912
  Transmission Date: 20171127
  Serious: No
  Sender: FDA-Public Use
  Company Number: US-PFIZER INC-2017294973

PATIENT
  Age: 59 Year
  Sex: Female

DRUGS (2)
  1. SUTENT [Suspect]
     Active Substance: SUNITINIB MALATE
     Dosage: 50 MG, CYCLIC ( 2 WEEKS ON/1 WEEK OFF)
     Dates: start: 20170601
  2. SUTENT [Suspect]
     Active Substance: SUNITINIB MALATE
     Indication: METASTATIC RENAL CELL CARCINOMA
     Dosage: 50 MG, CYCLIC (28 DAYS ON/14 DAYS OFF)
     Dates: start: 20170601

REACTIONS (13)
  - Eye swelling [Unknown]
  - Contusion [Unknown]
  - Palmar-plantar erythrodysaesthesia syndrome [Not Recovered/Not Resolved]
  - Rash [Unknown]
  - Increased appetite [Unknown]
  - Dysgeusia [Unknown]
  - Fatigue [Unknown]
  - Gait disturbance [Unknown]
  - Weight increased [Unknown]
  - Oral pain [Unknown]
  - Glossodynia [Unknown]
  - Swelling face [Unknown]
  - Acne [Unknown]

NARRATIVE: CASE EVENT DATE: 2017
